FAERS Safety Report 9806994 (Version 2)
Quarter: 2014Q1

REPORT INFORMATION
  Report Type: Spontaneous
  Country: US (occurrence: US)
  Receive Date: 20140109
  Receipt Date: 20140305
  Transmission Date: 20141002
  Serious: Yes (Other)
  Sender: FDA-Public Use
  Company Number: US-JNJFOC-20140103127

PATIENT
  Age: 67 Year
  Sex: Male
  Weight: 87.09 kg

DRUGS (7)
  1. INVOKANA [Suspect]
     Indication: TYPE 2 DIABETES MELLITUS
     Route: 048
     Dates: start: 20130701, end: 201312
  2. INVOKANA [Suspect]
     Indication: TYPE 2 DIABETES MELLITUS
     Route: 048
     Dates: start: 20130528, end: 201306
  3. ASPIRIN [Concomitant]
     Indication: CORONARY ARTERY DISEASE
     Route: 048
  4. CRESTOR [Concomitant]
     Indication: HYPERLIPIDAEMIA
  5. PIOGLITAZONE [Concomitant]
     Indication: TYPE 2 DIABETES MELLITUS
  6. ZOLPIDEM [Concomitant]
  7. PROZAC [Concomitant]
     Indication: DEPRESSION

REACTIONS (1)
  - Suicidal ideation [Recovered/Resolved]
